FAERS Safety Report 13997199 (Version 1)
Quarter: 2017Q3

REPORT INFORMATION
  Report Type: Spontaneous
  Country: DE (occurrence: DE)
  Receive Date: 20170921
  Receipt Date: 20170921
  Transmission Date: 20171128
  Serious: Yes (Other)
  Sender: FDA-Public Use
  Company Number: DE-BAYER-2017-179799

PATIENT
  Age: 0 Year
  Weight: 3.01 kg

DRUGS (2)
  1. VITAMIN K [Concomitant]
     Active Substance: PHYTONADIONE
     Indication: PROPHYLAXIS
  2. JAYDESS [Suspect]
     Active Substance: LEVONORGESTREL
     Dosage: UNK
     Route: 064
     Dates: start: 20151120, end: 20161205

REACTIONS (3)
  - Foetal acidosis [None]
  - Umbilical cord around neck [None]
  - Exposure during pregnancy [None]

NARRATIVE: CASE EVENT DATE: 201612
